FAERS Safety Report 7129066-5 (Version None)
Quarter: 2010Q4

REPORT INFORMATION
  Report Type: 
  Country: None (occurrence: None)
  Receive Date: 20101130
  Receipt Date: 20101123
  Transmission Date: 20110411
  Serious: Yes (Other)
  Sender: FDA-Public Use
  Company Number: US-US-EMD SERONO, INC.-430017K08USA

PATIENT
  Sex: Female
  Weight: 82 kg

DRUGS (15)
  1. NOVANTRONE [Suspect]
     Indication: MULTIPLE SCLEROSIS
     Route: 042
     Dates: start: 20050622, end: 20060101
  2. NOVANTRONE [Suspect]
     Dates: start: 20081031, end: 20100620
  3. REBIF [Suspect]
     Indication: MULTIPLE SCLEROSIS
     Dates: start: 20041109
  4. REBIF [Suspect]
     Route: 058
     Dates: start: 20070501, end: 20081027
  5. REBIF [Suspect]
  6. NEURONTIN [Concomitant]
     Indication: NEURALGIA
     Route: 065
     Dates: start: 20021028
  7. THYROLAR [Concomitant]
     Indication: THYROID DISORDER
     Route: 065
  8. AMITRIPTYLINE [Concomitant]
     Indication: SLEEP DISORDER
     Dates: start: 20021118
  9. SYNTHROID [Concomitant]
  10. ENALAPRIL [Concomitant]
  11. LASIX [Concomitant]
  12. CALCIUM [Concomitant]
  13. NEXIUM [Concomitant]
  14. TRAZODONE [Concomitant]
  15. POTASSIUM CHLORIDE [Concomitant]

REACTIONS (7)
  - CARDIAC FAILURE CONGESTIVE [None]
  - CARDIOMEGALY [None]
  - CONDUCTION DISORDER [None]
  - HEART RATE INCREASED [None]
  - HEART VALVE INCOMPETENCE [None]
  - RED BLOOD CELL COUNT DECREASED [None]
  - WHITE BLOOD CELL COUNT DECREASED [None]
